FAERS Safety Report 20245831 (Version 1)
Quarter: 2021Q4

REPORT INFORMATION
  Report Type: Spontaneous
  Country: CA (occurrence: CA)
  Receive Date: 20211229
  Receipt Date: 20211229
  Transmission Date: 20220303
  Serious: Yes (Life-Threatening, Other)
  Sender: FDA-Public Use
  Company Number: CA-NOVARTISPH-NVSC2021CA248448

PATIENT
  Age: 56 Year
  Sex: Female

DRUGS (1)
  1. LUTATHERA [Suspect]
     Active Substance: LUTETIUM OXODOTREOTIDE LU-177
     Indication: Gastroenteropancreatic neuroendocrine tumour disease
     Dosage: 3 UNK
     Route: 042
     Dates: start: 20210924

REACTIONS (4)
  - Ill-defined disorder [Recovered/Resolved]
  - Intestinal ischaemia [Recovering/Resolving]
  - Mesenteric vascular insufficiency [Recovering/Resolving]
  - Mesenteritis [Recovering/Resolving]

NARRATIVE: CASE EVENT DATE: 20211004
